FAERS Safety Report 21963396 (Version 4)
Quarter: 2023Q2

REPORT INFORMATION
  Report Type: Spontaneous
  Country: AR (occurrence: AR)
  Receive Date: 20230207
  Receipt Date: 20230406
  Transmission Date: 20230722
  Serious: No
  Sender: FDA-Public Use
  Company Number: AR-PFIZER INC-PV202300021006

PATIENT
  Age: 8 Year
  Sex: Female

DRUGS (1)
  1. GENOTROPIN [Suspect]
     Active Substance: SOMATROPIN
     Indication: Short stature
     Dosage: 0.6 TO 1 MG, 6 TIMES PER WEEK
     Dates: start: 20210302

REACTIONS (3)
  - Device failure [Not Recovered/Not Resolved]
  - Device information output issue [Not Recovered/Not Resolved]
  - Drug dose omission by device [Not Recovered/Not Resolved]

NARRATIVE: CASE EVENT DATE: 20230131
